FAERS Safety Report 13839400 (Version 1)
Quarter: 2017Q3

REPORT INFORMATION
  Report Type: Other
  Country: ES (occurrence: ES)
  Receive Date: 20170807
  Receipt Date: 20170807
  Transmission Date: 20171127
  Serious: Yes (Disabling, Other)
  Sender: FDA-Public Use
  Company Number: ES-KNIGHT THERAPEUTICS (USA) INC.-2024260

PATIENT
  Age: 41 Year
  Sex: Male

DRUGS (4)
  1. AMPHOTERICIN B. [Suspect]
     Active Substance: AMPHOTERICIN B
     Route: 042
  2. PAROMOMYCIN, MAH UNKNOWN [Suspect]
     Active Substance: PAROMOMYCIN
     Indication: VISCERAL LEISHMANIASIS
     Route: 030
  3. AMPHOTERICIN B. [Suspect]
     Active Substance: AMPHOTERICIN B
     Route: 042
  4. IMPAVIDO [Concomitant]
     Active Substance: MILTEFOSINE
     Route: 048

REACTIONS (2)
  - Renal impairment [Not Recovered/Not Resolved]
  - Deafness [Not Recovered/Not Resolved]
